FAERS Safety Report 6336435-X (Version None)
Quarter: 2009Q3

REPORT INFORMATION
  Report Type: 
  Country: None (occurrence: None)
  Receive Date: 20090901
  Receipt Date: 20090831
  Transmission Date: 20100115
  Serious: Yes (Other)
  Sender: FDA-Public Use
  Company Number: A0805082A

PATIENT
  Age: 44 Year
  Sex: Female

DRUGS (1)
  1. ALLI [Suspect]
     Indication: WEIGHT LOSS DIET
     Route: 048
     Dates: start: 20090827, end: 20090828

REACTIONS (9)
  - ABDOMINAL PAIN UPPER [None]
  - BLOOD PRESSURE DECREASED [None]
  - COLD SWEAT [None]
  - DIZZINESS [None]
  - FAECES DISCOLOURED [None]
  - FEELING COLD [None]
  - FEELING HOT [None]
  - GASTRIC INFECTION [None]
  - GASTRIC ULCER [None]
